FAERS Safety Report 9845483 (Version 1)
Quarter: 2014Q1

REPORT INFORMATION
  Report Type: Spontaneous
  Country: US (occurrence: US)
  Receive Date: 20140127
  Receipt Date: 20140127
  Transmission Date: 20141002
  Serious: No
  Sender: FDA-Public Use
  Company Number: US-009507513-1401USA005542

PATIENT
  Sex: Female

DRUGS (3)
  1. CLARITIN-D-12 [Suspect]
     Indication: NASOPHARYNGITIS
     Dosage: UNK, UNKNOWN
     Route: 048
  2. CLARITIN-D-12 [Suspect]
     Indication: RESPIRATORY TRACT CONGESTION
  3. CLARITIN-D-12 [Suspect]
     Indication: NASOPHARYNGITIS

REACTIONS (1)
  - Therapeutic response decreased [Unknown]
